FAERS Safety Report 12617338 (Version 2)
Quarter: 2016Q3

REPORT INFORMATION
  Report Type: Spontaneous
  Country: BR (occurrence: BR)
  Receive Date: 20160803
  Receipt Date: 20160919
  Transmission Date: 20161109
  Serious: No
  Sender: FDA-Public Use
  Company Number: BR-AMGEN-BRASP2012050471

PATIENT
  Age: 49 Year
  Sex: Female
  Weight: 53 kg

DRUGS (7)
  1. COMBIRON B 12 [Concomitant]
     Indication: ANAEMIA
     Dosage: UNK
  2. GEROVITAL [Concomitant]
     Dosage: UNK
  3. ENBREL [Suspect]
     Active Substance: ETANERCEPT
     Indication: RHEUMATOID ARTHRITIS
     Dosage: 50 MG, 1X/WEEK
     Route: 058
     Dates: start: 2013, end: 201605
  4. ENBREL [Suspect]
     Active Substance: ETANERCEPT
     Dosage: 1 AMPOULE 50 MG, 1X/WEEK
     Route: 058
     Dates: end: 201605
  5. ARTREN [Concomitant]
     Active Substance: DICLOFENAC SODIUM
     Dosage: UNK
  6. DICLOFENAC [Concomitant]
     Active Substance: DICLOFENAC
     Dosage: UNK
  7. RANITIDINE. [Concomitant]
     Active Substance: RANITIDINE
     Indication: ABDOMINAL DISCOMFORT
     Dosage: UNK

REACTIONS (7)
  - Drug effect incomplete [Not Recovered/Not Resolved]
  - Anaemia [Recovered/Resolved]
  - Bedridden [Not Recovered/Not Resolved]
  - Pain [Not Recovered/Not Resolved]
  - Arthralgia [Not Recovered/Not Resolved]
  - Condition aggravated [Recovered/Resolved]
  - Decreased immune responsiveness [Unknown]

NARRATIVE: CASE EVENT DATE: 2012
